FAERS Safety Report 19645561 (Version 1)
Quarter: 2021Q3

REPORT INFORMATION
  Report Type: Spontaneous
  Country: US (occurrence: US)
  Receive Date: 20210730
  Receipt Date: 20210730
  Transmission Date: 20211014
  Serious: Yes (Hospitalization)
  Sender: FDA-Public Use
  Company Number: None

PATIENT
  Age: 60 Year
  Sex: Female

DRUGS (16)
  1. ROSUVASTATIN. [Concomitant]
     Active Substance: ROSUVASTATIN
  2. CLINAMYCIN [Concomitant]
     Active Substance: CLINDAMYCIN
  3. OFLOXACIN. [Concomitant]
     Active Substance: OFLOXACIN
  4. DAPSONE. [Concomitant]
     Active Substance: DAPSONE
  5. HUMALOG KWIK [Concomitant]
  6. HUMIRA [Suspect]
     Active Substance: ADALIMUMAB
     Indication: HIDRADENITIS
     Dosage: ?          OTHER DOSE:1 PEN;?
     Route: 058
     Dates: start: 20200515
  7. ONDANSETRON [Concomitant]
     Active Substance: ONDANSETRON
  8. RIFAMPIN. [Concomitant]
     Active Substance: RIFAMPIN
  9. TRESIBA FLEX [Concomitant]
  10. OXYCODONE [Concomitant]
     Active Substance: OXYCODONE
  11. PREDNISOLONE OP [Concomitant]
  12. PREDNISONE. [Concomitant]
     Active Substance: PREDNISONE
  13. VICTOZA [Concomitant]
     Active Substance: LIRAGLUTIDE
  14. JANIVIA [Concomitant]
  15. LISINOPRIL. [Concomitant]
     Active Substance: LISINOPRIL
  16. METOPROL TAR [Concomitant]

REACTIONS (1)
  - Infection [None]

NARRATIVE: CASE EVENT DATE: 20210718
